FAERS Safety Report 19901590 (Version 1)
Quarter: 2021Q3

REPORT INFORMATION
  Report Type: Spontaneous
  Country: AT (occurrence: AT)
  Receive Date: 20210930
  Receipt Date: 20210930
  Transmission Date: 20211014
  Serious: Yes (Hospitalization)
  Sender: FDA-Public Use
  Company Number: AT-MYLANLABS-2021M1066198

PATIENT
  Age: 34 Year
  Sex: Male

DRUGS (1)
  1. ADALIMUMAB [Suspect]
     Active Substance: ADALIMUMAB
     Indication: COLITIS ULCERATIVE
     Dosage: UNK
     Route: 058
     Dates: start: 20201021, end: 202011

REACTIONS (13)
  - Mucosal haemorrhage [Unknown]
  - Colitis ulcerative [Recovering/Resolving]
  - Gastrointestinal pain [Unknown]
  - Dysplasia [Unknown]
  - General physical health deterioration [Unknown]
  - Oedema mucosal [Unknown]
  - Colitis [Recovering/Resolving]
  - Faecal calprotectin abnormal [Unknown]
  - Ulcer [Unknown]
  - Frequent bowel movements [Not Recovered/Not Resolved]
  - Gastrointestinal inflammation [Unknown]
  - Cytomegalovirus test positive [Recovering/Resolving]
  - Clostridium test positive [Unknown]

NARRATIVE: CASE EVENT DATE: 202011
